FAERS Safety Report 17187776 (Version 1)
Quarter: 2019Q4

REPORT INFORMATION
  Report Type: Report from Study
  Country: US (occurrence: US)
  Receive Date: 20191221
  Receipt Date: 20191221
  Transmission Date: 20200122
  Serious: Yes (Hospitalization)
  Sender: FDA-Public Use
  Company Number: PHHO2018US004336

PATIENT
  Age: 1 Year
  Sex: Female
  Weight: 12.1 kg

DRUGS (36)
  1. POLYETHYLENE GLYCOL [Concomitant]
     Active Substance: POLYETHYLENE GLYCOLS
     Dosage: 17 UNK
     Route: 048
  2. MENTHOL;ZINC [Concomitant]
     Indication: PRODUCT USED FOR UNKNOWN INDICATION
     Dosage: 113 G (1 APPLICATION TOPICALLY 2 TIMES A DAY AS NEEDED)
     Route: 065
  3. TRIAMCINOLONE [Concomitant]
     Active Substance: TRIAMCINOLONE
     Indication: PRODUCT USED FOR UNKNOWN INDICATION
     Dosage: 45 G (ON AFFECTED AREA TWICE DAILY FOR 10 DAYS)
     Route: 065
  4. GSK1120212 [Suspect]
     Active Substance: TRAMETINIB
     Dosage: 6 ML, QD
     Route: 048
     Dates: start: 20180425, end: 20180521
  5. IBUPROFEN. [Concomitant]
     Active Substance: IBUPROFEN
     Indication: PAIN
     Dosage: 120 ML (6 ML (120 MG TOTAL) BY G-TUBE ROUTE EVERY 6 HOURS AS NEEDED)
     Route: 048
  6. MUPIROCIN. [Concomitant]
     Active Substance: MUPIROCIN
     Indication: PRODUCT USED FOR UNKNOWN INDICATION
     Dosage: 22 G (APPLY TOPICALLY 3 TIMES A DAY AS NEEDED)
     Route: 065
  7. GLYCERIN SUPPOSITORIES [Concomitant]
     Dosage: 2.7 ML (NIGHTLY) (PRN)
     Route: 054
  8. ALBUTEROL. [Concomitant]
     Active Substance: ALBUTEROL
     Indication: PRODUCT USED FOR UNKNOWN INDICATION
     Dosage: 360 ML, TID (1 VIAL PATIENT TAKING DIFFERENTLY DAILY AND TID AS NEEDED)
     Route: 065
  9. AQUAPHOR HEALING [Concomitant]
     Active Substance: PETROLATUM
     Indication: PRODUCT USED FOR UNKNOWN INDICATION
     Dosage: 42 % (TAKING DIFFERENTLY)
     Route: 065
  10. CETIRIZINE [Concomitant]
     Active Substance: CETIRIZINE HYDROCHLORIDE
     Indication: HYPERSENSITIVITY
     Dosage: 120 ML, QD (2.5 MG TOTAL BY G-TUBE ROUTE DAILY AS NEEDED)
     Route: 048
  11. DEXTROSE + ELECTROLYTES [Concomitant]
     Indication: PRODUCT USED FOR UNKNOWN INDICATION
     Dosage: 3000 ML
     Route: 065
  12. GLYCERIN SUPPOSITORIES [Concomitant]
     Indication: PRODUCT USED FOR UNKNOWN INDICATION
     Dosage: 30 DF (O.5 DAILY AS NEEDED)
     Route: 054
  13. FAMOTIDINE. [Concomitant]
     Active Substance: FAMOTIDINE
     Indication: PRODUCT USED FOR UNKNOWN INDICATION
     Dosage: 50 ML (0.8 ML (6.4 MG TOTAL) BY G-TUBE ROUTE 2 TIMES A DAY)
     Route: 048
  14. SIMETHICONE (DIMETHICONE) [Concomitant]
     Active Substance: DIMETHICONE
     Dosage: 40 MG (4 TIMES DAILY) (PRN)
     Route: 065
  15. TRAMETINIB DIMETHYL SULFOXIDE [Concomitant]
     Active Substance: TRAMETINIB DIMETHYL SULFOXIDE
     Indication: PRODUCT USED FOR UNKNOWN INDICATION
     Dosage: 0.05 MG/ML
     Route: 048
  16. GSK1120212 [Suspect]
     Active Substance: TRAMETINIB
     Indication: NEUROFIBROMATOSIS
     Dosage: 6 ML, QD
     Route: 048
     Dates: start: 20161013, end: 20180331
  17. IBUPROFEN. [Concomitant]
     Active Substance: IBUPROFEN
     Dosage: 10 MG/KG, Q6H (PRN)
     Route: 048
  18. LEVETIRACETAM. [Concomitant]
     Active Substance: LEVETIRACETAM
     Dosage: 250 MG, BID
     Route: 065
  19. SODIUM CHLORIDE. [Concomitant]
     Active Substance: SODIUM CHLORIDE
     Indication: COUGH
     Dosage: 480 ML (4 ML AS NEEDED)
     Route: 065
  20. SODIUM CHLORIDE. [Concomitant]
     Active Substance: SODIUM CHLORIDE
     Dosage: 4 ML, Q6H
     Route: 065
  21. ALBUTEROL. [Concomitant]
     Active Substance: ALBUTEROL
     Dosage: 2.5 MG, Q6H (PRN)
     Route: 065
  22. FAMOTIDINE. [Concomitant]
     Active Substance: FAMOTIDINE
     Dosage: 6.4 MG, Q12H
     Route: 065
  23. LEVETIRACETAM. [Concomitant]
     Active Substance: LEVETIRACETAM
     Indication: PRODUCT USED FOR UNKNOWN INDICATION
     Dosage: 150 ML (2.5 ML BY G-TUBE EVERY 12 HOURS)
     Route: 048
  24. POLYETHYLENE GLYCOL [Concomitant]
     Active Substance: POLYETHYLENE GLYCOLS
     Indication: BOWEL MOVEMENT IRREGULARITY
     Dosage: 17 G (30 PACKET), QD
     Route: 048
  25. FISH LIVER OIL;ZINC [Concomitant]
     Indication: SKIN IRRITATION
     Dosage: UNK
     Route: 065
  26. MELATONIN [Concomitant]
     Active Substance: MELATONIN
     Dosage: 6 MG (NIGHTLY) (PRN)
     Route: 065
  27. SIMETHICONE (DIMETHICONE) [Concomitant]
     Active Substance: DIMETHICONE
     Indication: PRODUCT USED FOR UNKNOWN INDICATION
     Dosage: 30 ML (40MG/0.6 ML BY G-TUBE ROUTE 4 TIMES A DAY AS NEEDED)
     Route: 065
  28. SULFAMETOXAZOL/TRIMETOPRIM [Concomitant]
     Active Substance: SULFAMETHOXAZOLE\TRIMETHOPRIM
     Indication: PRODUCT USED FOR UNKNOWN INDICATION
     Dosage: 102 ML (27 MG OF TRIMETHOPRIM BY G-TUBE AND 0.05 MG/ML BY MOUTH)
     Route: 048
  29. ACETAMINOPHEN. [Concomitant]
     Active Substance: ACETAMINOPHEN
     Indication: PAIN
     Dosage: 236 ML, Q6H (6 ML (192 MG TOTAL) BY G-TUBE ROUTE EVERY 6 HOURS AS NEEDED)
     Route: 048
  30. SULFAMETOXAZOL/TRIMETOPRIM [Concomitant]
     Active Substance: SULFAMETHOXAZOLE\TRIMETHOPRIM
     Dosage: 4 ML (7 MG OF TRIMETHOPRIM), QD
     Route: 065
  31. GSK1120212 [Suspect]
     Active Substance: TRAMETINIB
     Dosage: 0.3 MG
     Route: 065
  32. ALBUTEROL. [Concomitant]
     Active Substance: ALBUTEROL
     Dosage: 4 OT (PUFF), Q6H
     Route: 055
  33. ACETAMINOPHEN. [Concomitant]
     Active Substance: ACETAMINOPHEN
     Dosage: 15 MG/KG, Q6H (PRN)
     Route: 048
  34. CETIRIZINE [Concomitant]
     Active Substance: CETIRIZINE HYDROCHLORIDE
     Dosage: 2.5 MG
     Route: 065
  35. NACL [Concomitant]
     Active Substance: SODIUM CHLORIDE
     Indication: COUGH
     Dosage: (3 MILLILITERS FROM THE INHALER FOUR TIMES A DAY AS NEEDED FOR COUGH)
     Route: 065
  36. MELATONIN [Concomitant]
     Active Substance: MELATONIN
     Indication: PRODUCT USED FOR UNKNOWN INDICATION
     Dosage: 59 ML (6 ML (6 MG TOTAL) BY G-TUBE ROUTE AT BED TIME, PRN
     Route: 065

REACTIONS (17)
  - Pyrexia [Unknown]
  - Respiratory syncytial virus infection [Not Recovered/Not Resolved]
  - Vomiting [Recovered/Resolved]
  - Blood sodium decreased [Unknown]
  - Blood potassium increased [Unknown]
  - Blood alkaline phosphatase decreased [Unknown]
  - Nasal congestion [Unknown]
  - Rhinorrhoea [Unknown]
  - Mean cell volume increased [Unknown]
  - C-reactive protein increased [Unknown]
  - Aspartate aminotransferase increased [Unknown]
  - Rhinovirus infection [Not Recovered/Not Resolved]
  - Hypoxia [Not Recovered/Not Resolved]
  - Red blood cells urine positive [Unknown]
  - Haematocrit increased [Unknown]
  - Mean cell haemoglobin increased [Unknown]
  - pH urine increased [Unknown]

NARRATIVE: CASE EVENT DATE: 20180401
